FAERS Safety Report 14885762 (Version 2)
Quarter: 2018Q2

REPORT INFORMATION
  Report Type: Report from Study
  Country: None (occurrence: GR)
  Receive Date: 20180512
  Receipt Date: 20180516
  Transmission Date: 20180711
  Serious: Yes (Death, Hospitalization)
  Sender: FDA-Public Use
  Company Number: GR-ABBVIE-18K-066-2352311-00

PATIENT
  Age: 78 Year
  Sex: Male
  Weight: 48 kg

DRUGS (8)
  1. DUODOPA [Suspect]
     Active Substance: CARBIDOPA\LEVODOPA
     Indication: PARKINSON^S DISEASE
     Dosage: MORNING DOSE:8.7ML; CONTINUOUS RATE:3.2ML/H; EXTRA DOSE:1.5ML
     Route: 050
     Dates: start: 20171024
  2. EXELON [Concomitant]
     Active Substance: RIVASTIGMINE TARTRATE
     Indication: DEMENTIA
     Route: 048
  3. RAPEXOLE [Concomitant]
     Indication: PARKINSON^S DISEASE
     Dosage: 0.7 MG TWICE A DAY OR 1.05MG ONCE A DAY
     Route: 048
  4. ALDACTONE [Concomitant]
     Active Substance: SPIRONOLACTONE
     Indication: PROPHYLAXIS
     Route: 048
  5. NEXIUM [Concomitant]
     Active Substance: ESOMEPRAZOLE MAGNESIUM
     Indication: PROPHYLAXIS
     Route: 048
  6. TAMSULOSIN [Concomitant]
     Active Substance: TAMSULOSIN
     Indication: PRODUCT USED FOR UNKNOWN INDICATION
     Route: 048
  7. OZAPEX [Concomitant]
     Indication: PSYCHOTIC DISORDER
     Route: 048
  8. AKINETON [Concomitant]
     Active Substance: BIPERIDEN HYDROCHLORIDE
     Indication: PARKINSON^S DISEASE
     Route: 048

REACTIONS (5)
  - Cardiac arrest [Fatal]
  - Septic shock [Fatal]
  - Parkinson^s disease [Fatal]
  - Pyrexia [Fatal]
  - Cardio-respiratory arrest [Fatal]

NARRATIVE: CASE EVENT DATE: 20180508
